FAERS Safety Report 8110463-6 (Version None)
Quarter: 2012Q1

REPORT INFORMATION
  Report Type: 
  Country: None (occurrence: None)
  Receive Date: 20120202
  Receipt Date: 20120127
  Transmission Date: 20120608
  Serious: Yes (Hospitalization, Other)
  Sender: FDA-Public Use
  Company Number: JP-TEVA-2011004234

PATIENT
  Sex: Male
  Weight: 67 kg

DRUGS (8)
  1. BENDAMUSTINE HCL [Suspect]
     Route: 042
     Dates: start: 20110629
  2. VALACYCLOVIR HYDROCHLORIDE [Concomitant]
  3. OMEPRAZOLE [Concomitant]
  4. MAGNESIUM OXIDE [Concomitant]
  5. BENDAMUSTINE HCL [Suspect]
     Indication: B-CELL LYMPHOMA
     Route: 042
     Dates: start: 20101220, end: 20101221
  6. SULFAMETHOXAZOLE AND TRIMETHOPRIM [Concomitant]
  7. BENDAMUSTINE HCL [Suspect]
     Route: 042
     Dates: start: 20110224, end: 20110225
  8. BENDAMUSTINE HCL [Suspect]
     Route: 042
     Dates: start: 20110407, end: 20110520

REACTIONS (6)
  - NEUTROPHIL COUNT DECREASED [None]
  - LYMPHOCYTE COUNT DECREASED [None]
  - HAEMOGLOBIN DECREASED [None]
  - PLATELET COUNT DECREASED [None]
  - TUMOUR LYSIS SYNDROME [None]
  - WHITE BLOOD CELL COUNT DECREASED [None]
